FAERS Safety Report 9959405 (Version 1)
Quarter: 2014Q1

REPORT INFORMATION
  Report Type: Spontaneous
  Country: US (occurrence: None)
  Receive Date: 20140228
  Receipt Date: 20140228
  Transmission Date: 20141002
  Serious: Yes (Death)
  Sender: FDA-Public Use
  Company Number: UTC-045204

PATIENT
  Age: 68 Year
  Sex: Female
  Weight: 70.45 kg

DRUGS (2)
  1. REMODULIN [Suspect]
     Dosage: 0.16 UG/KG 1 IN 1 MIN
     Dates: start: 20100830
  2. WARFARIN (UNKNOWN) [Concomitant]

REACTIONS (1)
  - Respiratory failure [None]
